FAERS Safety Report 5378413-3 (Version None)
Quarter: 2007Q3

REPORT INFORMATION
  Report Type: 
  Country: None (occurrence: None)
  Receive Date: 20070702
  Receipt Date: 20070702
  Transmission Date: 20080115
  Serious: Yes (Hospitalization)
  Sender: FDA-Public Use
  Company Number: None

PATIENT
  Age: 59 Year
  Sex: Male
  Weight: 84.369 kg

DRUGS (3)
  1. PHENYTOIN [Suspect]
     Indication: CONVULSION
     Dosage: 100MG TID PO
     Route: 048
     Dates: start: 20000601, end: 20070518
  2. ALBUTEROL / IPRATROP [Concomitant]
  3. AMOXICILLIN / CLAV K [Concomitant]

REACTIONS (2)
  - LOBAR PNEUMONIA [None]
  - STEVENS-JOHNSON SYNDROME [None]
